FAERS Safety Report 9689194 (Version 10)
Quarter: 2014Q1

REPORT INFORMATION
  Report Type: Report from Study
  Country: CA (occurrence: CA)
  Receive Date: 20131114
  Receipt Date: 20140313
  Transmission Date: 20141002
  Serious: Yes (Other)
  Sender: FDA-Public Use
  Company Number: CA-ROCHE-1151315

PATIENT
  Age: 47 Year
  Sex: Female
  Weight: 49.9 kg

DRUGS (15)
  1. RITUXAN [Suspect]
     Indication: RHEUMATOID ARTHRITIS
     Route: 042
     Dates: start: 20121029, end: 20130528
  2. ACTEMRA [Suspect]
     Indication: RHEUMATOID ARTHRITIS
     Route: 042
     Dates: start: 20130919, end: 20131017
  3. METHOTREXATE [Concomitant]
     Dosage: WEEKLY
     Route: 058
  4. PREDNISONE [Concomitant]
  5. ACTONEL [Concomitant]
  6. LEUCOVORIN [Concomitant]
  7. BUPROPION [Concomitant]
  8. LEVOTHYROXINE [Concomitant]
  9. CITALOPRAM [Concomitant]
  10. DIPHENHYDRAMINE HYDROCHLORIDE [Concomitant]
     Indication: PREMEDICATION
     Route: 048
     Dates: start: 20121029, end: 20130528
  11. ACETAMINOPHEN [Concomitant]
     Indication: PREMEDICATION
     Route: 048
     Dates: start: 20121029, end: 20130528
  12. METHYLPREDNISOLONE [Concomitant]
     Indication: PREMEDICATION
     Route: 042
     Dates: start: 20121029, end: 20130528
  13. PLAQUENIL [Concomitant]
     Route: 065
  14. TYLENOL [Concomitant]
     Route: 048
     Dates: start: 20121029, end: 20130528
  15. SOLU-MEDROL [Concomitant]
     Route: 042
     Dates: start: 20121029, end: 20130528

REACTIONS (6)
  - Blood urine present [Recovered/Resolved]
  - Bladder cancer [Unknown]
  - Infusion related reaction [Recovered/Resolved]
  - Drug ineffective [Unknown]
  - Hypotension [Recovering/Resolving]
  - Rheumatoid arthritis [Not Recovered/Not Resolved]
